FAERS Safety Report 23620648 (Version 3)
Quarter: 2024Q3

REPORT INFORMATION
  Report Type: Report from Study
  Country: US (occurrence: US)
  Receive Date: 20240312
  Receipt Date: 20240816
  Transmission Date: 20241016
  Serious: Yes (Other)
  Sender: ABBVIE
  Company Number: US-ABBVIE-5672781

PATIENT
  Sex: Female

DRUGS (1)
  1. VENCLEXTA [Suspect]
     Active Substance: VENETOCLAX
     Indication: Acute myeloid leukaemia
     Dosage: TAKE 1 TABLET BY MOUTH DAILY ON DAYS 1-7 OF EACH 28 DAY CYCLE?(TAKE WITH A MEAL AND WATER)
     Route: 048

REACTIONS (3)
  - Deafness [Unknown]
  - Off label use [Unknown]
  - Aphasia [Unknown]
